FAERS Safety Report 19949013 (Version 1)
Quarter: 2021Q4

REPORT INFORMATION
  Report Type: Spontaneous
  Country: US (occurrence: US)
  Receive Date: 20211012
  Receipt Date: 20211012
  Transmission Date: 20220303
  Serious: Yes (Life-Threatening)
  Sender: FDA-Public Use
  Company Number: None

PATIENT
  Age: 18 Year
  Sex: Female
  Weight: 127 kg

DRUGS (19)
  1. PROPOFOL [Suspect]
     Active Substance: PROPOFOL
     Indication: Mechanical ventilation
     Dosage: ?          OTHER FREQUENCY:CONTINUOUS INFUSIO;
     Route: 042
     Dates: start: 20211004, end: 20211005
  2. AZITHROMYCIN ANHYDROUS [Concomitant]
     Active Substance: AZITHROMYCIN ANHYDROUS
     Dates: start: 20211002, end: 20211010
  3. barcitinib [Concomitant]
     Dates: start: 20211004
  4. ceftriazone [Concomitant]
     Dates: start: 20211002, end: 20211011
  5. CHOLECALCIFEROL [Concomitant]
     Active Substance: CHOLECALCIFEROL
     Dates: start: 20211005
  6. DEXAMETHASONE [Concomitant]
     Active Substance: DEXAMETHASONE
     Dates: start: 20211001, end: 20211010
  7. ENOXAPARIN [Concomitant]
     Active Substance: ENOXAPARIN
     Dates: start: 20211002
  8. LANTUS [Concomitant]
     Active Substance: INSULIN GLARGINE
     Dates: start: 20211001
  9. INSULIN LISPRO [Concomitant]
     Active Substance: INSULIN LISPRO
     Dates: start: 20211001
  10. DUONEB [Concomitant]
     Active Substance: ALBUTEROL SULFATE\IPRATROPIUM BROMIDE
     Dates: start: 20211004, end: 20211009
  11. REMDESIVIR [Concomitant]
     Active Substance: REMDESIVIR
     Dates: start: 20211004, end: 20211008
  12. VANCOMYCIN [Concomitant]
     Active Substance: VANCOMYCIN
     Dates: start: 20211002, end: 20211003
  13. ZINC [Concomitant]
     Active Substance: ZINC
     Dates: start: 20211004
  14. CISATRACURIUM [Concomitant]
     Active Substance: CISATRACURIUM
     Dates: start: 20211004, end: 20211005
  15. DEXMEDETOMIDINE [Concomitant]
     Active Substance: DEXMEDETOMIDINE
     Dates: start: 20211004, end: 20211009
  16. HYDROMORPHONE [Concomitant]
     Active Substance: HYDROMORPHONE
     Dates: start: 20211004, end: 20211007
  17. MIDAZOLAM [Concomitant]
     Active Substance: MIDAZOLAM
     Dates: start: 20211004, end: 20211005
  18. NOREPINEPHRINE [Concomitant]
     Active Substance: NOREPINEPHRINE
     Dates: start: 20211005, end: 20211006
  19. PROPOFOL [Concomitant]
     Active Substance: PROPOFOL
     Dates: start: 20211004, end: 20211005

REACTIONS (2)
  - Propofol infusion syndrome [None]
  - Pyrexia [None]

NARRATIVE: CASE EVENT DATE: 20211005
